FAERS Safety Report 15407180 (Version 1)
Quarter: 2018Q3

REPORT INFORMATION
  Report Type: Spontaneous
  Country: US (occurrence: US)
  Receive Date: 20180920
  Receipt Date: 20180920
  Transmission Date: 20181010
  Serious: Yes (Other)
  Sender: FDA-Public Use
  Company Number: US-SA-2018SA168386

PATIENT
  Sex: Female
  Weight: 86.18 kg

DRUGS (7)
  1. OMEPRAZOLE. [Concomitant]
     Active Substance: OMEPRAZOLE
  2. NEOSAR [Concomitant]
     Active Substance: CYCLOPHOSPHAMIDE
  3. OXYCODONE [Concomitant]
     Active Substance: OXYCODONE
  4. TAXOTERE [Suspect]
     Active Substance: DOCETAXEL
     Indication: BREAST CANCER FEMALE
     Dosage: 150 MG, Q3W
     Route: 042
     Dates: start: 20120802, end: 20120802
  5. NEULASTA [Concomitant]
     Active Substance: PEGFILGRASTIM
  6. TAXOTERE [Suspect]
     Active Substance: DOCETAXEL
     Dosage: UNK
     Route: 042
     Dates: start: 20121004, end: 20121004
  7. CYTOXAN [Concomitant]
     Active Substance: CYCLOPHOSPHAMIDE

REACTIONS (2)
  - Psychological trauma [Unknown]
  - Alopecia [Recovering/Resolving]

NARRATIVE: CASE EVENT DATE: 201304
